FAERS Safety Report 13457072 (Version 1)
Quarter: 2017Q2

REPORT INFORMATION
  Report Type: Spontaneous
  Country: US (occurrence: US)
  Receive Date: 20170418
  Receipt Date: 20170418
  Transmission Date: 20170830
  Serious: Yes (Life-Threatening)
  Sender: FDA-Public Use
  Company Number: None

PATIENT
  Age: 77 Year
  Sex: Male
  Weight: 134 kg

DRUGS (1)
  1. IOPAMIDOL 370 [Suspect]
     Active Substance: IOPAMIDOL
     Dosage: ?          OTHER FREQUENCY:ONCE;?
     Route: 040
     Dates: start: 20170417, end: 20170417

REACTIONS (2)
  - Syncope [None]
  - Cardio-respiratory arrest [None]

NARRATIVE: CASE EVENT DATE: 20170417
